FAERS Safety Report 10694894 (Version 1)
Quarter: 2015Q1

REPORT INFORMATION
  Report Type: Spontaneous
  Country: US (occurrence: None)
  Receive Date: 20150106
  Receipt Date: 20150106
  Transmission Date: 20150721
  Serious: No
  Sender: FDA-Public Use
  Company Number: None

PATIENT
  Age: 23 Year
  Sex: Female
  Weight: 45.36 kg

DRUGS (1)
  1. BENZONATATE. [Suspect]
     Active Substance: BENZONATATE
     Indication: COUGH
     Dosage: 1 CAPSULE, THREE TIMES DAILY, TAKEN BY MOUTH
     Route: 048

REACTIONS (1)
  - Restless legs syndrome [None]

NARRATIVE: CASE EVENT DATE: 20150104
